FAERS Safety Report 20278307 (Version 1)
Quarter: 2022Q1

REPORT INFORMATION
  Report Type: Spontaneous
  Country: US (occurrence: US)
  Receive Date: 20220103
  Receipt Date: 20220103
  Transmission Date: 20220424
  Serious: Yes (Other)
  Sender: FDA-Public Use
  Company Number: US-NOVOPROD-879889

PATIENT
  Age: 47 Year
  Sex: Female

DRUGS (2)
  1. OZEMPIC [Suspect]
     Active Substance: SEMAGLUTIDE
     Indication: Weight decreased
  2. OZEMPIC [Suspect]
     Active Substance: SEMAGLUTIDE
     Indication: Blood glucose increased
     Dosage: 0.5 MG
     Route: 058
     Dates: start: 202107

REACTIONS (3)
  - Hypothalamo-pituitary disorder [Unknown]
  - Renal disorder [Unknown]
  - Insulin resistance [Unknown]

NARRATIVE: CASE EVENT DATE: 20211201
